APPROVED DRUG PRODUCT: SOLIFENACIN SUCCINATE
Active Ingredient: SOLIFENACIN SUCCINATE
Strength: 10MG
Dosage Form/Route: TABLET;ORAL
Application: A209424 | Product #002
Applicant: TORRENT PHARMACEUTICALS LTD
Approved: Mar 4, 2025 | RLD: No | RS: No | Type: DISCN